FAERS Safety Report 10558275 (Version 1)
Quarter: 2014Q4

REPORT INFORMATION
  Report Type: Spontaneous
  Country: US (occurrence: US)
  Receive Date: 20141031
  Receipt Date: 20141031
  Transmission Date: 20150529
  Serious: No
  Sender: FDA-Public Use
  Company Number: US-BAYER-2014-154274

PATIENT
  Age: 65 Year
  Sex: Female

DRUGS (1)
  1. CLIMARA PRO [Suspect]
     Active Substance: ESTRADIOL\LEVONORGESTREL
     Indication: MENOPAUSAL SYMPTOMS
     Dosage: UNK
     Route: 062
     Dates: start: 2014

REACTIONS (2)
  - Drug dose omission [None]
  - Product adhesion issue [None]

NARRATIVE: CASE EVENT DATE: 2014
